FAERS Safety Report 22622853 (Version 1)
Quarter: 2023Q2

REPORT INFORMATION
  Report Type: Spontaneous
  Country: US (occurrence: US)
  Receive Date: 20230621
  Receipt Date: 20230621
  Transmission Date: 20230721
  Serious: Yes (Other)
  Sender: FDA-Public Use
  Company Number: None

PATIENT
  Age: 50 Year
  Sex: Female

DRUGS (3)
  1. CLONIDINE [Suspect]
     Active Substance: CLONIDINE
     Indication: Abdominal pain
     Dosage: UNK,UNK (SYNCHROMED-II PUMP(HIGHER CONCENTRATION )
     Route: 037
  2. FENTANYL [Suspect]
     Active Substance: FENTANYL
     Indication: Abdominal pain
     Dosage: UNK , UNK (SYNCHROMED-II PUMP(HIGHER CONCENTRATION )
     Route: 037
  3. BUPIVACAINE [Suspect]
     Active Substance: BUPIVACAINE
     Indication: Abdominal pain
     Dosage: UNK,UNK (SYNCHROMED-II PUMP(HIGHER CONCENTRATION)
     Route: 037

REACTIONS (3)
  - Somnolence [Recovering/Resolving]
  - Device programming error [Recovered/Resolved]
  - Accidental overdose [Recovered/Resolved]
